FAERS Safety Report 5012535-1 (Version None)
Quarter: 2006Q2

REPORT INFORMATION
  Report Type: 
  Country: None (occurrence: None)
  Receive Date: 20060526
  Receipt Date: 20060328
  Transmission Date: 20061013
  Serious: Yes (Life-Threatening, Hospitalization, Disabling, Other)
  Sender: FDA-Public Use
  Company Number: US-MERCK-0603USA04353

PATIENT
  Age: 40 Year
  Sex: Female
  Weight: 68 kg

DRUGS (13)
  1. HYZAAR [Suspect]
     Route: 048
  2. LABETALOL HYDROCHLORIDE [Concomitant]
     Route: 048
     Dates: start: 20040830
  3. LABETALOL HYDROCHLORIDE [Concomitant]
     Route: 048
     Dates: start: 20041114
  4. LABETALOL HYDROCHLORIDE [Concomitant]
     Route: 048
     Dates: start: 20041117
  5. LABETALOL HYDROCHLORIDE [Concomitant]
     Route: 048
     Dates: start: 20060118
  6. LABETALOL HYDROCHLORIDE [Concomitant]
     Route: 048
     Dates: start: 20060316
  7. LABETALOL HYDROCHLORIDE [Concomitant]
     Route: 048
     Dates: start: 20060328
  8. LIPITOR [Concomitant]
     Route: 048
     Dates: start: 20040305, end: 20040312
  9. LIPITOR [Concomitant]
     Route: 048
     Dates: start: 20040830, end: 20040101
  10. DIATX [Concomitant]
     Route: 065
     Dates: start: 20051207
  11. ASPIRIN [Concomitant]
     Route: 048
     Dates: start: 20051207
  12. OXYGEN [Concomitant]
     Route: 065
     Dates: start: 20050305
  13. PANLOR SS [Concomitant]
     Indication: PAIN IN EXTREMITY
     Route: 048
     Dates: start: 20040211

REACTIONS (8)
  - HAEMATOCRIT DECREASED [None]
  - HAEMOGLOBIN DECREASED [None]
  - HEPATITIS [None]
  - INFLAMMATION [None]
  - PANCREATITIS ACUTE [None]
  - PLATELET COUNT DECREASED [None]
  - PLEURAL EFFUSION [None]
  - PSEUDOCYST [None]
